FAERS Safety Report 23503138 (Version 1)
Quarter: 2024Q1

REPORT INFORMATION
  Report Type: Spontaneous
  Country: US (occurrence: US)
  Receive Date: 20240208
  Receipt Date: 20240208
  Transmission Date: 20240410
  Serious: Yes (Hospitalization)
  Sender: FDA-Public Use
  Company Number: US-INTRA-CELLULAR THERAPIES, INC.-2023ICT01779

PATIENT
  Age: 26 Year
  Sex: Female

DRUGS (5)
  1. CAPLYTA [Suspect]
     Active Substance: LUMATEPERONE
     Indication: Bipolar II disorder
     Dosage: UNK
  2. CAPLYTA [Suspect]
     Active Substance: LUMATEPERONE
     Indication: Bipolar disorder
  3. WELLBUTRIN [Concomitant]
     Active Substance: BUPROPION HYDROCHLORIDE
  4. TRILEPTAL [Concomitant]
     Active Substance: OXCARBAZEPINE
  5. BUSPAR [Concomitant]
     Active Substance: BUSPIRONE HYDROCHLORIDE

REACTIONS (1)
  - Tremor [Unknown]
